FAERS Safety Report 8482982-4 (Version None)
Quarter: 2012Q2

REPORT INFORMATION
  Report Type: 
  Country: None (occurrence: None)
  Receive Date: 20120625
  Receipt Date: 20120613
  Transmission Date: 20120825
  Serious: Yes (Hospitalization, Other)
  Sender: FDA-Public Use
  Company Number: 2012SP032652

PATIENT
  Age: 43 Year
  Sex: Female

DRUGS (8)
  1. SYCREST (ASENAPINE /05706901/) [Suspect]
     Indication: PRODUCT USED FOR UNKNOWN INDICATION
     Dosage: 20;15;10;5 MG, QD, PO
     Route: 048
     Dates: start: 20120405, end: 20120405
  2. SYCREST (ASENAPINE /05706901/) [Suspect]
     Indication: PRODUCT USED FOR UNKNOWN INDICATION
     Dosage: 20;15;10;5 MG, QD, PO
     Route: 048
     Dates: start: 20120110, end: 20120131
  3. SYCREST (ASENAPINE /05706901/) [Suspect]
     Indication: PRODUCT USED FOR UNKNOWN INDICATION
     Dosage: 20;15;10;5 MG, QD, PO
     Route: 048
     Dates: start: 20120201, end: 20120325
  4. SYCREST (ASENAPINE /05706901/) [Suspect]
     Indication: PRODUCT USED FOR UNKNOWN INDICATION
     Dosage: 20;15;10;5 MG, QD, PO
     Route: 048
     Dates: start: 20120403, end: 20120404
  5. SYCREST (ASENAPINE /05706901/) [Suspect]
     Indication: PRODUCT USED FOR UNKNOWN INDICATION
     Dosage: 20;15;10;5 MG, QD, PO
     Route: 048
     Dates: start: 20120326, end: 20120402
  6. PAROXETINE HCL [Suspect]
     Indication: PRODUCT USED FOR UNKNOWN INDICATION
     Dosage: 10 MG, QD, PO
     Route: 048
     Dates: start: 20120410, end: 20120418
  7. PAROXETINE HCL [Suspect]
     Indication: PRODUCT USED FOR UNKNOWN INDICATION
     Dosage: 10 MG, QD, PO
     Route: 048
     Dates: start: 20120110, end: 20120325
  8. ACETYLCYSTEINE [Concomitant]

REACTIONS (12)
  - CEREBELLAR SYNDROME [None]
  - DIZZINESS [None]
  - FEELING ABNORMAL [None]
  - PAIN IN JAW [None]
  - DYSARTHRIA [None]
  - SCHIZOAFFECTIVE DISORDER DEPRESSIVE TYPE [None]
  - EMOTIONAL DISORDER [None]
  - DRUG INTERACTION [None]
  - EXTRAPYRAMIDAL DISORDER [None]
  - DYSPHAGIA [None]
  - TENSION [None]
  - RESTLESSNESS [None]
